FAERS Safety Report 6800593-0 (Version None)
Quarter: 2010Q2

REPORT INFORMATION
  Report Type: 
  Country: None (occurrence: None)
  Receive Date: 20100625
  Receipt Date: 20100625
  Transmission Date: 20101027
  Serious: Yes (Other)
  Sender: FDA-Public Use
  Company Number: None

PATIENT
  Age: 26 Year
  Sex: Male
  Weight: 122.4712 kg

DRUGS (1)
  1. NORDIFLEX 30MG NORTITROPIN [Suspect]

REACTIONS (2)
  - ABDOMINAL DISTENSION [None]
  - FATIGUE [None]
